FAERS Safety Report 19976472 (Version 3)
Quarter: 2021Q4

REPORT INFORMATION
  Report Type: Spontaneous
  Country: US (occurrence: US)
  Receive Date: 20211020
  Receipt Date: 20211020
  Transmission Date: 20220303
  Serious: No
  Sender: FDA-Public Use
  Company Number: US-ALLERGAN-2124461US

PATIENT
  Age: 88 Year
  Sex: Male
  Weight: 91 kg

DRUGS (10)
  1. LINZESS [Suspect]
     Active Substance: LINACLOTIDE
     Indication: Large intestinal obstruction
     Dosage: 290 ?G, QD 30 MINUTES TO AN HOUR BEFORE BREAKFAST
     Dates: start: 20210301
  2. LINZESS [Suspect]
     Active Substance: LINACLOTIDE
     Indication: Constipation
  3. LINZESS [Suspect]
     Active Substance: LINACLOTIDE
     Indication: Abdominal pain
  4. LINZESS [Suspect]
     Active Substance: LINACLOTIDE
     Indication: Large intestinal obstruction
     Dosage: 72 ?G, QD 30 MINUTES TO AN HOUR BEFORE BREAKFAST
  5. LINZESS [Suspect]
     Active Substance: LINACLOTIDE
     Indication: Constipation
  6. LINZESS [Suspect]
     Active Substance: LINACLOTIDE
     Indication: Abdominal pain
  7. LINZESS [Suspect]
     Active Substance: LINACLOTIDE
     Indication: Abdominal pain
  8. LINZESS [Suspect]
     Active Substance: LINACLOTIDE
     Indication: Constipation
  9. GLIPIZIDE [Concomitant]
     Active Substance: GLIPIZIDE
     Indication: Pollakiuria
     Dosage: 5 MG TWICE PER DAY
     Dates: start: 2016
  10. FLOMAX [Concomitant]
     Active Substance: TAMSULOSIN HYDROCHLORIDE
     Indication: Pollakiuria
     Dosage: 4 MG TAKEN IN THE MORNING AND 4 MG AT NIGHT
     Dates: start: 2016

REACTIONS (11)
  - Feeling abnormal [Unknown]
  - Defaecation disorder [Not Recovered/Not Resolved]
  - Product administration interrupted [Unknown]
  - Product administration error [Unknown]
  - Off label use [Unknown]
  - Abnormal faeces [Unknown]
  - Defaecation urgency [Not Recovered/Not Resolved]
  - Constipation [Unknown]
  - Diarrhoea [Not Recovered/Not Resolved]
  - Flatulence [Unknown]
  - Drug ineffective [Unknown]

NARRATIVE: CASE EVENT DATE: 20210628
